FAERS Safety Report 6306651-1 (Version None)
Quarter: 2009Q3

REPORT INFORMATION
  Report Type: 
  Country: None (occurrence: None)
  Receive Date: 20090812
  Receipt Date: 20090810
  Transmission Date: 20100115
  Serious: Yes (Other)
  Sender: FDA-Public Use
  Company Number: B0588214A

PATIENT
  Age: 64 Year
  Sex: Male

DRUGS (2)
  1. LAMIVUDINE [Suspect]
     Indication: HEPATITIS B
  2. GANCICLOVIR [Concomitant]

REACTIONS (2)
  - ACUTE HEPATIC FAILURE [None]
  - TREATMENT FAILURE [None]
